FAERS Safety Report 4375045-0 (Version None)
Quarter: 2004Q2

REPORT INFORMATION
  Report Type: 
  Country: None (occurrence: None)
  Receive Date: 20040603
  Receipt Date: 20040521
  Transmission Date: 20050107
  Serious: Yes (Other)
  Sender: FDA-Public Use
  Company Number: 2004034663

PATIENT
  Age: 16 Year
  Sex: Male
  Weight: 62 kg

DRUGS (1)
  1. SERTRALINE HCL [Suspect]
     Indication: DEPRESSION
     Dosage: 50 MG (50 MG, 1 IN 1 D), ORAL
     Route: 048
     Dates: start: 20040324, end: 20040429

REACTIONS (1)
  - UNEVALUABLE EVENT [None]
